FAERS Safety Report 15963071 (Version 1)
Quarter: 2019Q1

REPORT INFORMATION
  Report Type: Spontaneous
  Country: US (occurrence: US)
  Receive Date: 20190214
  Receipt Date: 20190214
  Transmission Date: 20190417
  Serious: No
  Sender: FDA-Public Use
  Company Number: US-009507513-1902USA002474

PATIENT
  Age: 50 Year
  Sex: Male
  Weight: 113.39 kg

DRUGS (3)
  1. BENADRYL [Suspect]
     Active Substance: DIPHENHYDRAMINE HYDROCHLORIDE
     Indication: PERENNIAL ALLERGY
     Dosage: 2 TABLETS ONCE DAILY
     Route: 048
     Dates: start: 20100727
  2. ASTEPRO [Suspect]
     Active Substance: AZELASTINE HYDROCHLORIDE
     Indication: PERENNIAL ALLERGY
     Dosage: 2822 MICROGRAM QD (SPRAYS PER NOSTRIL ONCE DAILY)
     Route: 045
     Dates: start: 20100727
  3. NASONEX [Suspect]
     Active Substance: MOMETASONE FUROATE
     Indication: PERENNIAL ALLERGY
     Dosage: 200 MICROGRAM QD (2 SPRAYS PER NOSTRIL ONCE DAILY)
     Route: 045
     Dates: start: 20100727

REACTIONS (2)
  - Paraesthesia [Not Recovered/Not Resolved]
  - Dizziness [Not Recovered/Not Resolved]

NARRATIVE: CASE EVENT DATE: 20100728
